FAERS Safety Report 4283967-4 (Version None)
Quarter: 2004Q1

REPORT INFORMATION
  Report Type: 
  Country: None (occurrence: None)
  Receive Date: 20040121
  Receipt Date: 20021205
  Transmission Date: 20041129
  Serious: Yes (Hospitalization)
  Sender: FDA-Public Use
  Company Number: A03200201504

PATIENT
  Age: 78 Year
  Sex: Male
  Weight: 65.7716 kg

DRUGS (6)
  1. PLAVIX [Suspect]
     Indication: CEREBROVASCULAR ACCIDENT
     Dosage: 75 MG QD - ORAL
     Route: 048
     Dates: start: 20000101
  2. PLAVIX [Suspect]
     Indication: PAIN IN EXTREMITY
     Dosage: 75 MG QD - ORAL
     Route: 048
     Dates: start: 20000101
  3. PLAVIX [Suspect]
     Indication: POOR PERIPHERAL CIRCULATION
     Dosage: 75 MG QD - ORAL
     Route: 048
     Dates: start: 20000101
  4. CLONIDINE [Concomitant]
  5. FELODIPINE [Concomitant]
  6. TERAZOSIN HCL [Concomitant]

REACTIONS (2)
  - DRUG INEFFECTIVE [None]
  - PAIN IN EXTREMITY [None]
